FAERS Safety Report 7732894 (Version 4)
Quarter: 2013Q3

REPORT INFORMATION
  Report Type: Spontaneous
  Country: US (occurrence: US)
  Receive Date: 20101223
  Receipt Date: 20130923
  Transmission Date: 20140515
  Serious: No
  Sender: FDA-Public Use
  Company Number: US-BIOGENIDEC-2010BI043934

PATIENT
  Sex: Female

DRUGS (4)
  1. TYSABRI [Suspect]
     Indication: MULTIPLE SCLEROSIS
     Route: 042
     Dates: start: 20100915
  2. GABAPENTIN [Concomitant]
     Indication: TREMOR
     Route: 048
  3. BACLOFEN [Concomitant]
     Indication: TREMOR
     Route: 048
  4. AMPYRA [Concomitant]
     Indication: PAIN IN EXTREMITY

REACTIONS (8)
  - Rhinorrhoea [Not Recovered/Not Resolved]
  - Cough [Not Recovered/Not Resolved]
  - Orgasm abnormal [Recovered/Resolved]
  - Insomnia [Unknown]
  - Sexual dysfunction [Unknown]
  - Nasopharyngitis [Not Recovered/Not Resolved]
  - Viral infection [Not Recovered/Not Resolved]
  - Sinusitis [Recovered/Resolved]
